FAERS Safety Report 6642166-9 (Version None)
Quarter: 2010Q1

REPORT INFORMATION
  Report Type: 
  Country: None (occurrence: None)
  Receive Date: 20100319
  Receipt Date: 20100308
  Transmission Date: 20100710
  Serious: Yes (Death, Hospitalization, Other)
  Sender: FDA-Public Use
  Company Number: DE-PFIZER INC-2010029195

PATIENT
  Age: 65 Year
  Sex: Female

DRUGS (10)
  1. NEURONTIN [Suspect]
     Indication: NEURALGIA
     Dosage: UNK
     Route: 048
     Dates: start: 20050718
  2. MARCUMAR [Suspect]
     Indication: THROMBOSIS PROPHYLAXIS
     Dosage: UNK
     Route: 048
     Dates: start: 20050718
  3. DELIX [Suspect]
     Indication: HYPERTENSION
     Dosage: 2.5 MG, 2X/DAY
     Route: 048
     Dates: start: 20051117
  4. BELOC ZOK [Suspect]
     Indication: HYPERTENSION
     Dosage: UNK
     Route: 048
     Dates: start: 20051117
  5. TORSEMIDE [Suspect]
     Indication: HYPERTENSION
     Dosage: 20 MG, 2X/DAY
     Route: 048
     Dates: start: 20051117
  6. SPIRONOLACTONE ^RATIOPHARM^ [Suspect]
     Indication: OEDEMA
     Dosage: 50 MG, 1X/DAY
     Route: 048
     Dates: start: 20051117
  7. FERROUS SULFATE TAB [Suspect]
     Indication: SUPPLEMENTATION THERAPY
     Dosage: UNK
     Route: 048
     Dates: start: 20060522
  8. ALLOPURINOL [Suspect]
     Indication: HYPERURICAEMIA
     Dosage: 150 MG, 1X/DAY
     Route: 048
     Dates: start: 20060522
  9. PRAVA [Suspect]
     Indication: HYPERCHOLESTEROLAEMIA
     Dosage: 10 MG, 1X/DAY
     Route: 048
     Dates: start: 20060522
  10. VITAMIN B12 ^RATIOPHARM^ [Suspect]
     Indication: VITAMIN SUPPLEMENTATION
     Dosage: UNK
     Route: 048
     Dates: start: 20060523

REACTIONS (3)
  - CARDIAC FAILURE [None]
  - MULTI-ORGAN FAILURE [None]
  - STEVENS-JOHNSON SYNDROME [None]
